FAERS Safety Report 8762601 (Version 2)
Quarter: 2012Q4

REPORT INFORMATION
  Report Type: 
  Country: TW (occurrence: TW)
  Receive Date: 20120830
  Receipt Date: 20121001
  Transmission Date: 20130627
  Serious: Yes (Life-Threatening, Hospitalization)
  Sender: FDA-Public Use
  Company Number: TW-ROCHE-CID000000002132875

PATIENT
  Age: 82 Year
  Sex: Male

DRUGS (2)
  1. LUCENTIS [Suspect]
     Indication: AGE-RELATED MACULAR DEGENERATION
     Route: 050
     Dates: start: 20120214
  2. TOBRADEX [Concomitant]
     Indication: POSTOPERATIVE CARE
     Route: 061
     Dates: start: 20120214, end: 20120430

REACTIONS (1)
  - Hepatitis acute [Recovered/Resolved]
